FAERS Safety Report 19108822 (Version 4)
Quarter: 2021Q3

REPORT INFORMATION
  Report Type: Spontaneous
  Country: IT (occurrence: IT)
  Receive Date: 20210408
  Receipt Date: 20210928
  Transmission Date: 20211014
  Serious: Yes (Death, Hospitalization, Other)
  Sender: FDA-Public Use
  Company Number: IT-IBIGEN-2021.10049

PATIENT
  Age: 64 Year
  Sex: Male

DRUGS (19)
  1. HYDROXYCHLOROQUINE [Suspect]
     Active Substance: HYDROXYCHLOROQUINE
     Indication: COVID-19
     Dosage: UNK UNK, UNKNOWN ()
     Route: 065
  2. METHYLPREDNISOLONE. [Suspect]
     Active Substance: METHYLPREDNISOLONE
     Indication: COVID-19
     Dosage: 0.5 MG/KG, UNKNOWN
     Route: 065
  3. MYCOPHENOLATE [Suspect]
     Active Substance: MYCOPHENOLIC ACID
     Indication: COVID-19
     Dosage: UNK UNK, UNKNOWN ()
     Route: 065
  4. METHYLPREDNISOLONE. [Suspect]
     Active Substance: METHYLPREDNISOLONE
     Dosage: 1 MG/KG, UNK
     Route: 065
  5. ATOVAQUONE. [Suspect]
     Active Substance: ATOVAQUONE
     Indication: PROPHYLAXIS
     Dosage: UNK UNK, UNKNOWN ()
     Route: 065
  6. ISAVUCONAZONIUM [Suspect]
     Active Substance: ISAVUCONAZONIUM
     Indication: PROPHYLAXIS
     Route: 042
     Dates: start: 20200330, end: 20200428
  7. PIPERACILLIN AND TAZOBACTAM [Suspect]
     Active Substance: PIPERACILLIN SODIUM\TAZOBACTAM SODIUM
     Indication: PRODUCT USED FOR UNKNOWN INDICATION
     Dosage: UNK UNK, UNKNOWN ()
     Route: 065
  8. LETERMOVIR [Suspect]
     Active Substance: LETERMOVIR
     Indication: PROPHYLAXIS
     Dosage: UNK UNK, UNKNOWN ()
     Route: 065
  9. LOPINAVIR W/RITONAVIR [Suspect]
     Active Substance: LOPINAVIR\RITONAVIR
     Indication: COVID-19
     Dosage: UNK UNK, UNKNOWN ()
     Route: 065
  10. ACYCLOVIR. [Suspect]
     Active Substance: ACYCLOVIR
     Indication: PROPHYLAXIS
     Dosage: UNK UNK, UNKNOWN ()
     Route: 065
  11. AZITHROMYCIN DIHYDRATE. [Suspect]
     Active Substance: AZITHROMYCIN DIHYDRATE
     Indication: OFF LABEL USE
     Dosage: ()
  12. ISAVUCONAZOLE [Suspect]
     Active Substance: ISAVUCONAZOLE
     Indication: PROPHYLAXIS
     Dosage: UNK UNK, UNKNOWN ()
     Route: 048
     Dates: start: 20200328, end: 20200329
  13. TOCILIZUMAB. [Suspect]
     Active Substance: TOCILIZUMAB
     Indication: COVID-19
     Dosage: 6 MG/KG, SINGLE ; IN TOTAL??????
     Route: 065
  14. DAPTOMYCIN. [Suspect]
     Active Substance: DAPTOMYCIN
     Indication: ANTIBIOTIC THERAPY
     Dosage: UNK UNK, UNKNOWN ()
     Route: 065
  15. CYCLOSPORINE. [Suspect]
     Active Substance: CYCLOSPORINE
     Indication: COVID-19
     Dosage: UNK UNK, UNKNOWN ()
     Route: 065
  16. DEFIBROTIDE SODIUM. [Suspect]
     Active Substance: DEFIBROTIDE SODIUM
     Indication: COVID-19
     Dosage: 6.25 MG/KG, QID (4/DAY)
     Route: 042
  17. REMDESIVIR. [Suspect]
     Active Substance: REMDESIVIR
     Indication: COVID-19
     Dosage: 100 MG, QD (1/DAY)
     Route: 065
  18. AZITHROMYCIN DIHYDRATE. [Suspect]
     Active Substance: AZITHROMYCIN DIHYDRATE
     Indication: COVID-19
     Dosage: UNK, UNKNOWN ()
     Route: 065
  19. MEROPENEM. [Suspect]
     Active Substance: MEROPENEM
     Indication: ANTIBIOTIC THERAPY
     Dosage: UNK UNK, UNKNOWN ()
     Route: 065

REACTIONS (9)
  - Hepatic failure [Fatal]
  - Altered state of consciousness [Unknown]
  - Septic shock [Recovered/Resolved]
  - Product use in unapproved indication [Unknown]
  - COVID-19 [Fatal]
  - Drug level increased [Recovering/Resolving]
  - Drug interaction [Unknown]
  - Off label use [Unknown]
  - Aspergillus infection [Fatal]

NARRATIVE: CASE EVENT DATE: 20200402
